FAERS Safety Report 7757574-2 (Version None)
Quarter: 2011Q3

REPORT INFORMATION
  Report Type: 
  Country: None (occurrence: None)
  Receive Date: 20110916
  Receipt Date: 20110913
  Transmission Date: 20111222
  Serious: Yes (Other)
  Sender: FDA-Public Use
  Company Number: GXKR2011DE02782

PATIENT
  Age: 47 Year
  Sex: Male

DRUGS (1)
  1. LEVOFLOXACIN [Suspect]
     Dosage: 500 MG, UNK
     Route: 048

REACTIONS (3)
  - TACHYCARDIA [None]
  - BLOOD PRESSURE INCREASED [None]
  - ATRIAL FIBRILLATION [None]
